FAERS Safety Report 21445694 (Version 1)
Quarter: 2022Q4

REPORT INFORMATION
  Report Type: Spontaneous
  Country: GB (occurrence: GB)
  Receive Date: 20221012
  Receipt Date: 20221012
  Transmission Date: 20230112
  Serious: Yes (Hospitalization, Other)
  Sender: FDA-Public Use
  Company Number: GB-MALLINCKRODT-T202205240

PATIENT
  Age: 49 Year
  Sex: Male

DRUGS (9)
  1. UVADEX [Suspect]
     Active Substance: METHOXSALEN
     Indication: Graft versus host disease
     Dosage: UNK, EXTRACORPOREAL (TWICE WEEKLY THEN FORTNIGHTLY)
     Route: 050
  2. UVADEX [Suspect]
     Active Substance: METHOXSALEN
     Indication: Myelodysplastic syndrome
  3. CIDOFOVIR [Suspect]
     Active Substance: CIDOFOVIR
     Indication: Cystitis haemorrhagic
     Dosage: UNK
     Route: 043
  4. CIDOFOVIR [Suspect]
     Active Substance: CIDOFOVIR
     Indication: BK virus infection
     Dosage: UNK
     Route: 042
  5. METHYLPREDNISOLONE [Suspect]
     Active Substance: METHYLPREDNISOLONE
     Indication: Graft versus host disease
     Dosage: UNK
     Route: 065
  6. BUDESONIDE [Suspect]
     Active Substance: BUDESONIDE
     Indication: Graft versus host disease
     Dosage: UNK
     Route: 065
  7. TACROLIMUS [Suspect]
     Active Substance: TACROLIMUS
     Indication: Graft versus host disease
     Dosage: UNK
     Route: 065
  8. RUXOLITINIB [Suspect]
     Active Substance: RUXOLITINIB
     Indication: Graft versus host disease
     Dosage: UNK
     Route: 065
  9. CYCLOSPORINE [Suspect]
     Active Substance: CYCLOSPORINE
     Indication: Graft versus host disease
     Dosage: UNK
     Route: 065

REACTIONS (17)
  - Bacteraemia [Unknown]
  - Vascular device infection [Unknown]
  - Enterococcal infection [Unknown]
  - Staphylococcal infection [Unknown]
  - BK virus infection [Recovering/Resolving]
  - Cystitis haemorrhagic [Recovering/Resolving]
  - Pneumonia fungal [Unknown]
  - Hypophagia [Unknown]
  - Gastric ulcer [Unknown]
  - Transplant dysfunction [Not Recovered/Not Resolved]
  - Cytomegalovirus viraemia [Recovering/Resolving]
  - Adenovirus infection [Recovering/Resolving]
  - Renal impairment [Unknown]
  - Graft versus host disease [Not Recovered/Not Resolved]
  - Condition aggravated [Not Recovered/Not Resolved]
  - Hyperglycaemia [Unknown]
  - Product use in unapproved indication [Unknown]

NARRATIVE: CASE EVENT DATE: 20220401
